FAERS Safety Report 17048077 (Version 1)
Quarter: 2019Q4

REPORT INFORMATION
  Report Type: Spontaneous
  Country: US (occurrence: US)
  Receive Date: 20191119
  Receipt Date: 20191119
  Transmission Date: 20200122
  Serious: No
  Sender: FDA-Public Use
  Company Number: US-PFIZER INC-2019494688

PATIENT
  Age: 65 Year
  Sex: Female

DRUGS (1)
  1. XELJANZ [Suspect]
     Active Substance: TOFACITINIB CITRATE
     Dosage: 5 MG, UNK
     Dates: start: 20190913

REACTIONS (6)
  - Headache [Unknown]
  - Palpitations [Unknown]
  - Myalgia [Unknown]
  - Fatigue [Unknown]
  - Rhinorrhoea [Unknown]
  - Feeling hot [Unknown]
